FAERS Safety Report 10459154 (Version 1)
Quarter: 2014Q3

REPORT INFORMATION
  Report Type: Spontaneous
  Country: US (occurrence: None)
  Receive Date: 20140916
  Receipt Date: 20140916
  Transmission Date: 20150326
  Serious: Yes (Hospitalization)
  Sender: FDA-Public Use
  Company Number: None

PATIENT
  Age: 39 Year
  Sex: Male
  Weight: 148 kg

DRUGS (15)
  1. PAZOPANIB [Suspect]
     Active Substance: PAZOPANIB
     Dosage: 4 TABLETS, QD, ORAL
     Route: 048
     Dates: start: 20140429
  2. OXYCODONE [Concomitant]
     Active Substance: OXYCODONE
  3. LOPERAMIDE [Concomitant]
     Active Substance: LOPERAMIDE
  4. OXYBUTYNIN [Concomitant]
     Active Substance: OXYBUTYNIN
  5. ACETAMINOPHEN. [Concomitant]
     Active Substance: ACETAMINOPHEN
  6. OXYCONTIN [Concomitant]
     Active Substance: OXYCODONE HYDROCHLORIDE
  7. BENAZEPRIL [Concomitant]
     Active Substance: BENAZEPRIL\BENAZEPRIL HYDROCHLORIDE
  8. HYDROCORTISONE. [Concomitant]
     Active Substance: HYDROCORTISONE
  9. DAPTOMYCIN [Concomitant]
     Active Substance: DAPTOMYCIN
  10. DULOXETINE [Concomitant]
     Active Substance: DULOXETINE
  11. ALPRAZOLAM. [Concomitant]
     Active Substance: ALPRAZOLAM
  12. MEROPENEM. [Concomitant]
     Active Substance: MEROPENEM
  13. NICORETTE [Concomitant]
     Active Substance: NICOTINE
  14. GABAPENTIN. [Concomitant]
     Active Substance: GABAPENTIN
  15. PROCHLORPERAZINE. [Concomitant]
     Active Substance: PROCHLORPERAZINE

REACTIONS (2)
  - Procedural pain [None]
  - Pneumothorax [None]

NARRATIVE: CASE EVENT DATE: 20140519
